FAERS Safety Report 9667763 (Version 1)
Quarter: 2013Q4

REPORT INFORMATION
  Report Type: Spontaneous
  Country: US (occurrence: None)
  Receive Date: 20131101
  Receipt Date: 20131101
  Transmission Date: 20140711
  Serious: Yes (Hospitalization)
  Sender: FDA-Public Use
  Company Number: 20130091

PATIENT
  Age: 49 Year
  Sex: Female

DRUGS (3)
  1. SUBSYS [Suspect]
     Indication: CANCER PAIN
     Dosage: 4XDAY
     Route: 060
     Dates: start: 20130815
  2. DILAUDID [Concomitant]
  3. OPANA [Concomitant]

REACTIONS (3)
  - Stomatitis [None]
  - Condition aggravated [None]
  - Somnolence [None]
